FAERS Safety Report 19981174 (Version 1)
Quarter: 2021Q4

REPORT INFORMATION
  Report Type: Spontaneous
  Country: US (occurrence: US)
  Receive Date: 20211021
  Receipt Date: 20211021
  Transmission Date: 20220303
  Serious: No
  Sender: FDA-Public Use
  Company Number: US-PFIZER INC-202101245348

PATIENT
  Age: 60 Year
  Sex: Male

DRUGS (1)
  1. RUXIENCE [Suspect]
     Active Substance: RITUXIMAB-PVVR
     Indication: B-cell lymphoma
     Dosage: UNK

REACTIONS (5)
  - Neoplasm progression [Unknown]
  - Immune system disorder [Unknown]
  - Blood disorder [Unknown]
  - Platelet count decreased [Unknown]
  - Red blood cell count decreased [Unknown]
